FAERS Safety Report 10043173 (Version 1)
Quarter: 2014Q1

REPORT INFORMATION
  Report Type: Spontaneous
  Country: FR (occurrence: FR)
  Receive Date: 20140328
  Receipt Date: 20140328
  Transmission Date: 20141002
  Serious: Yes (Other)
  Sender: FDA-Public Use
  Company Number: FR-ROCHE-1371621

PATIENT
  Age: 50 Year
  Sex: Female

DRUGS (9)
  1. MABTHERA [Suspect]
     Indication: NON-HODGKIN^S LYMPHOMA
     Route: 041
     Dates: start: 20131003, end: 20140123
  2. LEVACT (FRANCE) [Suspect]
     Indication: NON-HODGKIN^S LYMPHOMA
     Route: 041
     Dates: start: 20131003, end: 20140124
  3. ACUPAN [Suspect]
     Indication: PRODUCT USED FOR UNKNOWN INDICATION
     Route: 048
     Dates: start: 20140131, end: 20140203
  4. SOLUPRED (FRANCE) [Concomitant]
     Route: 065
     Dates: start: 20140123, end: 20140129
  5. PRIMPERAN [Concomitant]
     Route: 065
     Dates: start: 20140123, end: 20140124
  6. INEXIUM [Concomitant]
     Route: 065
     Dates: start: 20140123, end: 20140129
  7. TRAMADOL [Concomitant]
     Dosage: 50 MG,
     Route: 065
  8. GAVISCON (FRANCE) [Concomitant]
     Dosage: 1 G 4 TIMES
     Route: 065
  9. DOLIPRANE [Concomitant]
     Dosage: 1 G 4 TIMES
     Route: 065

REACTIONS (4)
  - Rash vesicular [Recovered/Resolved]
  - Face oedema [Recovered/Resolved]
  - Pyrexia [Recovered/Resolved]
  - Eosinophilia [Recovered/Resolved]
